FAERS Safety Report 14321548 (Version 1)
Quarter: 2017Q4

REPORT INFORMATION
  Report Type: Spontaneous
  Country: NL (occurrence: NL)
  Receive Date: 20171223
  Receipt Date: 20171223
  Transmission Date: 20180321
  Serious: Yes (Hospitalization)
  Sender: FDA-Public Use
  Company Number: NL-MYLANLABS-2017M1080798

PATIENT
  Age: 76 Year
  Sex: Male
  Weight: 71 kg

DRUGS (7)
  1. PANTOPRAZOL [Concomitant]
     Active Substance: PANTOPRAZOLE SODIUM
     Dosage: 2DD1
  2. EFUDIX 50 MG/G CREAM [Suspect]
     Active Substance: FLUOROURACIL
     Indication: ACTINIC KERATOSIS
     Dosage: 2DD1 DOSIS
     Dates: start: 20171107, end: 20171120
  3. KALIUMLOSARTAN SANDOZ [Concomitant]
     Dosage: 1DD1
  4. PARACETAMOL [Concomitant]
     Active Substance: ACETAMINOPHEN
     Dosage: ZN 1000MG
  5. MACROGOL [Concomitant]
     Active Substance: POLYETHYLENE GLYCOLS
     Dosage: 1DD1
  6. EZETIMIB SANDOZ [Concomitant]
     Dosage: 1DD1
  7. METOPROLOLSUCCINAAT/HYDROCHLOORTHIAZIDE SANDO [Concomitant]
     Dosage: 1DD1

REACTIONS (4)
  - Application site discharge [Recovering/Resolving]
  - Erythema [Recovering/Resolving]
  - Skin burning sensation [Recovering/Resolving]
  - Scab [Recovering/Resolving]

NARRATIVE: CASE EVENT DATE: 20171114
